FAERS Safety Report 16019291 (Version 16)
Quarter: 2020Q1

REPORT INFORMATION
  Report Type: Report from Study
  Country: US (occurrence: US)
  Receive Date: 20190228
  Receipt Date: 20200130
  Transmission Date: 20200409
  Serious: Yes (Hospitalization)
  Sender: FDA-Public Use
  Company Number: US-ACTELION-A-NJ2019-185228

PATIENT
  Age: 60 Year
  Sex: Female
  Weight: 81.18 kg

DRUGS (11)
  1. ADEMPAS [Concomitant]
     Active Substance: RIOCIGUAT
     Dosage: 2.5 UNK, TID
  2. VELETRI [Suspect]
     Active Substance: EPOPROSTENOL
     Indication: PULMONARY HYPERTENSION
     Dosage: 13 NG/KG, PER MIN
     Route: 042
     Dates: start: 20190206, end: 20200101
  3. VELETRI [Suspect]
     Active Substance: EPOPROSTENOL
     Dosage: 18 NG/KG, PER MIN
     Route: 042
     Dates: start: 20181212
  4. OPSUMIT [Suspect]
     Active Substance: MACITENTAN
     Indication: PULMONARY HYPERTENSION
     Dosage: 10 MG, QD
     Route: 048
  5. OXYGEN. [Concomitant]
     Active Substance: OXYGEN
  6. KCL [Concomitant]
     Active Substance: POTASSIUM CHLORIDE
  7. PRAVASTATIN. [Concomitant]
     Active Substance: PRAVASTATIN
  8. SPIRONOLACTONE. [Concomitant]
     Active Substance: SPIRONOLACTONE
  9. VELETRI [Suspect]
     Active Substance: EPOPROSTENOL
     Dosage: 12 NG/KG, PER MIN
     Route: 042
     Dates: start: 20181129
  10. VELETRI [Suspect]
     Active Substance: EPOPROSTENOL
     Dosage: 11 NG/KG, PER MIN
     Route: 042
     Dates: start: 20190209
  11. CELLCEPT [Concomitant]
     Active Substance: MYCOPHENOLATE MOFETIL\MYCOPHENOLATE MOFETIL HYDROCHLORIDE

REACTIONS (24)
  - Asthenia [Unknown]
  - Diarrhoea [Unknown]
  - Abdominal distension [Unknown]
  - Decreased appetite [Unknown]
  - Cough [Unknown]
  - Chest pain [Unknown]
  - Hospitalisation [Unknown]
  - Nausea [Unknown]
  - Chest tube insertion [Unknown]
  - Chest tube removal [Unknown]
  - Lung consolidation [Unknown]
  - Pulmonary hypertension [Unknown]
  - Oedema peripheral [Unknown]
  - Hyponatraemia [Unknown]
  - Unevaluable event [Unknown]
  - Dyspnoea [Unknown]
  - Immunosuppression [Unknown]
  - Pulmonary embolism [Unknown]
  - Pneumonia [Unknown]
  - Fluid retention [Unknown]
  - Upper respiratory tract infection [Unknown]
  - Chest discomfort [Unknown]
  - Pneumothorax spontaneous [Unknown]
  - Headache [Unknown]

NARRATIVE: CASE EVENT DATE: 20190206
